FAERS Safety Report 8229133-9 (Version None)
Quarter: 2012Q1

REPORT INFORMATION
  Report Type: 
  Country: None (occurrence: None)
  Receive Date: 20120322
  Receipt Date: 20120320
  Transmission Date: 20120608
  Serious: Yes (Hospitalization, Other)
  Sender: FDA-Public Use
  Company Number: GB-SANOFI-AVENTIS-2012SA014126

PATIENT
  Age: 45 Year
  Sex: Female
  Weight: 52.7 kg

DRUGS (3)
  1. LANTUS [Suspect]
     Route: 065
  2. NOVORAPID [Concomitant]
     Indication: TYPE 1 DIABETES MELLITUS
  3. CLIKSTAR [Suspect]

REACTIONS (9)
  - PALPITATIONS [None]
  - GASTROENTERITIS [None]
  - DIARRHOEA [None]
  - DIABETES MELLITUS INADEQUATE CONTROL [None]
  - NAUSEA [None]
  - DIABETIC KETOACIDOSIS [None]
  - VOMITING [None]
  - HYPERGLYCAEMIA [None]
  - MALAISE [None]
